FAERS Safety Report 9032087 (Version 1)
Quarter: 2013Q1

REPORT INFORMATION
  Report Type: Spontaneous
  Country: BR (occurrence: BR)
  Receive Date: 20130122
  Receipt Date: 20130122
  Transmission Date: 20140127
  Serious: Yes (Other)
  Sender: FDA-Public Use
  Company Number: PHHY2013BR005397

PATIENT
  Sex: Female
  Weight: 58 kg

DRUGS (2)
  1. CODATEN [Suspect]
     Indication: INTERVERTEBRAL DISC PROTRUSION
     Dosage: 2-3 DF, DAILY
     Route: 048
     Dates: start: 20130116, end: 20130116
  2. OMEPRAZOLE [Concomitant]
     Dosage: 1 DF, DAILY
     Route: 048
     Dates: start: 20130117

REACTIONS (10)
  - Urinary incontinence [Recovered/Resolved]
  - Dyspnoea [Recovered/Resolved]
  - Vomiting [Recovered/Resolved]
  - Malaise [Recovered/Resolved]
  - Hypoaesthesia [Recovered/Resolved]
  - Musculoskeletal chest pain [Recovered/Resolved]
  - Abdominal pain [Recovered/Resolved]
  - Constipation [Recovered/Resolved]
  - Flatulence [Recovered/Resolved]
  - Nausea [Recovered/Resolved]
